FAERS Safety Report 6098539-9 (Version None)
Quarter: 2009Q1

REPORT INFORMATION
  Report Type: 
  Country: None (occurrence: None)
  Receive Date: 20090302
  Receipt Date: 20090219
  Transmission Date: 20090719
  Serious: Yes (Hospitalization)
  Sender: FDA-Public Use
  Company Number: DE-BAXTER-2009BH000186

PATIENT
  Age: 34 Year
  Sex: Female

DRUGS (2)
  1. CYCLOPHOSPHAMIDE [Suspect]
     Indication: BREAST CANCER
     Route: 065
     Dates: start: 20081031, end: 20081211
  2. DOXORUBICIN HCL [Suspect]
     Indication: BREAST CANCER
     Route: 065
     Dates: start: 20081031, end: 20081211

REACTIONS (1)
  - INFLUENZA [None]
